FAERS Safety Report 11720065 (Version 2)
Quarter: 2015Q4

REPORT INFORMATION
  Report Type: Spontaneous
  Country: GB (occurrence: GB)
  Receive Date: 20151027
  Receipt Date: 20151111
  Transmission Date: 20160304
  Serious: Yes (Life-Threatening, Hospitalization, Other)
  Sender: FDA-Public Use
  Company Number: GB-PFIZER INC-2015348924

PATIENT
  Age: 45 Year
  Sex: Male

DRUGS (6)
  1. MST /00021210/ [Concomitant]
     Indication: PROPHYLAXIS
     Dosage: VARIABLE REDUCING DOSE
     Route: 048
     Dates: start: 20150508, end: 20151026
  2. LOPERAMIDE [Concomitant]
     Active Substance: LOPERAMIDE
     Indication: DIARRHOEA
     Dosage: PRO RENATA
     Route: 048
     Dates: start: 20150508
  3. XALKORI [Suspect]
     Active Substance: CRIZOTINIB
     Indication: NON-SMALL CELL LUNG CANCER
     Dosage: 250 MG, 2X/DAY
     Route: 048
     Dates: start: 20150808, end: 20151008
  4. DOMPERIDONE [Concomitant]
     Active Substance: DOMPERIDONE
     Indication: NAUSEA
     Dosage: 10 MG, 3X/DAY PRO RENATA
     Route: 048
     Dates: start: 20150508
  5. DOMPERIDONE [Concomitant]
     Active Substance: DOMPERIDONE
     Indication: VOMITING
  6. BENZYDAMINE [Concomitant]
     Active Substance: BENZYDAMINE
     Indication: ORAL PAIN
     Dosage: 10 UNK, 4X/DAY
     Route: 048
     Dates: start: 20150808

REACTIONS (2)
  - Renal impairment [Not Recovered/Not Resolved]
  - Blood creatinine increased [Unknown]

NARRATIVE: CASE EVENT DATE: 2015
